FAERS Safety Report 5394825-6 (Version None)
Quarter: 2007Q3

REPORT INFORMATION
  Report Type: 
  Country: None (occurrence: None)
  Receive Date: 20070720
  Receipt Date: 20070711
  Transmission Date: 20080115
  Serious: Yes (Other)
  Sender: FDA-Public Use
  Company Number: B0479345A

PATIENT
  Age: 9 Year
  Sex: Male
  Weight: 53.5 kg

DRUGS (6)
  1. FLUTICASONE PROPIONATE UNSPECIFIED INHALER DEVICE (GENERIC) (FLUTICASO [Suspect]
     Dosage: 220 UG TWICE PER DAY INHALED
     Route: 055
  2. LOPINAVIR + RITONAVIR (FORMULATION UNKNOWN) (LOPINAVIR + RITONAVIR) [Suspect]
     Indication: HIV INFECTION
     Dosage: 270 UG TWICE PER DAY
  3. DIDANOSINE [Concomitant]
  4. LAMIVUDINE [Concomitant]
  5. MONTELUKAST SODIUM [Concomitant]
  6. MOMETASONE FUROATE [Concomitant]

REACTIONS (3)
  - ADRENAL SUPPRESSION [None]
  - CUSHING'S SYNDROME [None]
  - DRUG INTERACTION [None]
